FAERS Safety Report 15737200 (Version 1)
Quarter: 2018Q4

REPORT INFORMATION
  Report Type: Spontaneous
  Country: IN (occurrence: IN)
  Receive Date: 20181218
  Receipt Date: 20181218
  Transmission Date: 20190205
  Serious: Yes (Death, Other)
  Sender: FDA-Public Use
  Company Number: IN-JAZZ-2018-IN-018286

PATIENT

DRUGS (2)
  1. DEFIBROTIDE [Suspect]
     Active Substance: DEFIBROTIDE (BOVINE)
     Indication: VENOOCCLUSIVE DISEASE
  2. TERLIPRESSIN [Suspect]
     Active Substance: TERLIPRESSIN
     Indication: VENOOCCLUSIVE DISEASE
     Dosage: 30 ?G/KG, QD

REACTIONS (1)
  - Multiple organ dysfunction syndrome [Fatal]
